FAERS Safety Report 9678060 (Version 1)
Quarter: 2013Q4

REPORT INFORMATION
  Report Type: Spontaneous
  Country: US (occurrence: None)
  Receive Date: 20131107
  Receipt Date: 20131107
  Transmission Date: 20140711
  Serious: No
  Sender: FDA-Public Use
  Company Number: None

PATIENT
  Age: 41 Year
  Sex: Female
  Weight: 84.37 kg

DRUGS (3)
  1. IMPLANON [Suspect]
     Indication: CONTRACEPTION
     Dates: start: 20131009
  2. SSRI [Concomitant]
  3. DICLOFENAC [Concomitant]

REACTIONS (3)
  - Device damage [None]
  - Device difficult to use [None]
  - Incorrect dose administered [None]
